FAERS Safety Report 23329417 (Version 1)
Quarter: 2023Q4

REPORT INFORMATION
  Report Type: Spontaneous
  Country: CN (occurrence: CN)
  Receive Date: 20231222
  Receipt Date: 20231222
  Transmission Date: 20240110
  Serious: Yes (Hospitalization)
  Sender: FDA-Public Use
  Company Number: CN-002147023-NVSC2023CN269318

PATIENT
  Age: 81 Year
  Sex: Male
  Weight: 82 kg

DRUGS (2)
  1. CARBAMAZEPINE [Suspect]
     Active Substance: CARBAMAZEPINE
     Indication: Trigeminal neuralgia
     Dosage: 0.1 G, BID
     Route: 048
     Dates: start: 20231201, end: 20231202
  2. CARBAMAZEPINE [Suspect]
     Active Substance: CARBAMAZEPINE
     Dosage: 0.1 G, TID
     Route: 048
     Dates: start: 20231203, end: 20231205

REACTIONS (2)
  - Gait disturbance [Recovering/Resolving]
  - Ataxia [Recovering/Resolving]

NARRATIVE: CASE EVENT DATE: 20231205
